FAERS Safety Report 6155205-9 (Version None)
Quarter: 2009Q2

REPORT INFORMATION
  Report Type: 
  Country: None (occurrence: None)
  Receive Date: 20090415
  Receipt Date: 20090406
  Transmission Date: 20091009
  Serious: Yes (Other)
  Sender: FDA-Public Use
  Company Number: US-WYE-H08843909

PATIENT
  Sex: Female
  Weight: 122.58 kg

DRUGS (8)
  1. PRISTIQ [Suspect]
     Indication: DEPRESSION
     Route: 048
     Dates: start: 20090325
  2. DIOVAN [Concomitant]
     Indication: HYPERTENSION
     Dosage: UNKNOWN DOSE AS HS
  3. LEXAPRO [Concomitant]
     Dosage: UNKNOWN
     Dates: end: 20090331
  4. SPIRONOLACTONE [Concomitant]
     Indication: HYPERTENSION
  5. METFORMIN HCL [Concomitant]
     Indication: DIABETES MELLITUS
  6. GLYBURIDE [Concomitant]
  7. THYROID TAB [Concomitant]
     Dosage: UNKNOWN
  8. HYGROTON [Concomitant]
     Indication: HYPERTENSION
     Dosage: UNKNOWN DAILY DOSE

REACTIONS (6)
  - ANGER [None]
  - BLOOD GLUCOSE INCREASED [None]
  - CRYING [None]
  - FEELING ABNORMAL [None]
  - SCREAMING [None]
  - SUICIDAL IDEATION [None]
